FAERS Safety Report 4632398-3 (Version None)
Quarter: 2005Q2

REPORT INFORMATION
  Report Type: 
  Country: None (occurrence: None)
  Receive Date: 20050411
  Receipt Date: 20050405
  Transmission Date: 20051028
  Serious: Yes (Disabling)
  Sender: FDA-Public Use
  Company Number: GB-BOEHRINGER INGELHEIM PHARMACEUTICALS, INC.-2005-BP-05675YA

PATIENT
  Age: 67 Year
  Sex: Male

DRUGS (4)
  1. TAMSULOSIN HCL [Suspect]
     Indication: BENIGN PROSTATIC HYPERPLASIA
     Route: 048
     Dates: start: 20050119, end: 20050303
  2. LANSOPRAZOLE [Concomitant]
     Indication: GASTROOESOPHAGEAL REFLUX DISEASE
     Route: 048
  3. BECLOMETHASONE DIPROPIONATE [Concomitant]
     Indication: ASTHMA
     Dosage: 4 DF
     Route: 055
  4. SALBUTAMOL [Concomitant]
     Dosage: 2 DF PRN
     Route: 055

REACTIONS (1)
  - ATRIAL FIBRILLATION [None]
